FAERS Safety Report 15990639 (Version 1)
Quarter: 2019Q1

REPORT INFORMATION
  Report Type: Spontaneous
  Country: US (occurrence: US)
  Receive Date: 20190125
  Receipt Date: 20190125
  Transmission Date: 20190418
  Serious: No
  Sender: FDA-Public Use
  Company Number: None

PATIENT
  Age: 38 Year
  Sex: Male

DRUGS (1)
  1. ODEFSEY [Suspect]
     Active Substance: EMTRICITABINE\RILPIVIRINE HYDROCHLORIDE\TENOFOVIR ALAFENAMIDE FUMARATE
     Route: 047
     Dates: start: 201801

REACTIONS (4)
  - Depression [None]
  - Gastrointestinal infection [None]
  - Shigella infection [None]
  - Escherichia infection [None]

NARRATIVE: CASE EVENT DATE: 20190125
